FAERS Safety Report 8936896 (Version 1)
Quarter: 2012Q4

REPORT INFORMATION
  Report Type: 
  Country: US (occurrence: US)
  Receive Date: 20121130
  Receipt Date: 20121130
  Transmission Date: 20130627
  Serious: Yes (Other)
  Sender: FDA-Public Use
  Company Number: PHHY2012US109459

PATIENT
  Age: 15 Year

DRUGS (2)
  1. METHOTREXATE [Suspect]
     Indication: LYMPHOMA
  2. OMEPRAZOLE [Interacting]

REACTIONS (2)
  - Renal function test abnormal [Recovered/Resolved]
  - Drug interaction [Recovered/Resolved]
